FAERS Safety Report 10214981 (Version 1)
Quarter: 2014Q2

REPORT INFORMATION
  Report Type: Report from Study
  Country: DK (occurrence: DE)
  Receive Date: 20140603
  Receipt Date: 20140603
  Transmission Date: 20141212
  Serious: Yes (Hospitalization)
  Sender: FDA-Public Use
  Company Number: DE-FRI-1000067781

PATIENT
  Sex: Male

DRUGS (15)
  1. ESCITALOPRAM [Suspect]
     Dosage: 5 MG
     Route: 048
     Dates: start: 20120327, end: 20120330
  2. ESCITALOPRAM [Suspect]
     Dosage: 10 MG
     Route: 048
     Dates: start: 20120331, end: 20120502
  3. MIRTAZAPIN [Suspect]
     Dosage: 30 MG
     Route: 048
     Dates: start: 20120327, end: 20120422
  4. MIRTAZAPIN [Suspect]
     Dosage: 15 MG
     Route: 048
     Dates: start: 20120423, end: 20120502
  5. CLEXANE [Suspect]
     Dosage: 0.6 ML
     Route: 050
     Dates: start: 20120413, end: 20120419
  6. CLEXANE [Suspect]
     Dosage: 1.2 ML
     Route: 050
     Dates: start: 20120420, end: 20120420
  7. CLEXANE [Suspect]
     Dosage: 0.6 ML
     Route: 050
     Dates: start: 20120421, end: 20120502
  8. EBIXA [Concomitant]
     Dosage: 10 MG
     Route: 048
     Dates: start: 20100101, end: 20120418
  9. EBIXA [Concomitant]
     Dosage: 15 MG
     Route: 048
     Dates: start: 20120419, end: 20120420
  10. EBIXA [Concomitant]
     Dosage: 20 MG
     Route: 048
     Dates: start: 20120421, end: 20120425
  11. EBIXA [Concomitant]
     Dosage: 15 MG
     Route: 048
     Dates: start: 20120426, end: 20120426
  12. EBIXA [Concomitant]
     Dosage: 10 MG
     Route: 048
     Dates: start: 20120427, end: 20120502
  13. RISPERDAL [Concomitant]
     Dosage: 1 MG
     Route: 048
     Dates: start: 20120413, end: 20120413
  14. RISPERDAL [Concomitant]
     Dosage: 0.5 MG
     Route: 048
     Dates: start: 20120414, end: 20120501
  15. BISOPROLOL [Concomitant]
     Dosage: 5 MG
     Route: 048
     Dates: start: 20090101, end: 20120502

REACTIONS (2)
  - Cerebellar haemorrhage [Recovering/Resolving]
  - Tachycardia [Recovering/Resolving]
